FAERS Safety Report 6044820-9 (Version None)
Quarter: 2009Q1

REPORT INFORMATION
  Report Type: 
  Country: None (occurrence: None)
  Receive Date: 20090120
  Receipt Date: 20090112
  Transmission Date: 20090719
  Serious: Yes (Other)
  Sender: FDA-Public Use
  Company Number: US-GILEAD-2009-0019807

PATIENT
  Sex: Male

DRUGS (2)
  1. TRUVADA [Suspect]
     Indication: HEPATITIS B VIRUS TEST
  2. REYATAZ [Concomitant]

REACTIONS (3)
  - DRUG INEFFECTIVE [None]
  - HEPATITIS [None]
  - HEPATITIS ACUTE [None]
